FAERS Safety Report 9658772 (Version 2)
Quarter: 2013Q4

REPORT INFORMATION
  Report Type: Spontaneous
  Country: US (occurrence: US)
  Receive Date: 20131030
  Receipt Date: 20131030
  Transmission Date: 20140711
  Serious: Yes (Other)
  Sender: FDA-Public Use
  Company Number: US-NAPPMUNDI-USA-2010-0053382

PATIENT
  Age: 45 Year
  Sex: Male

DRUGS (1)
  1. OXYCONTIN (NDA 22-272) [Suspect]
     Indication: BACK PAIN

REACTIONS (6)
  - Toxicity to various agents [Unknown]
  - Loss of consciousness [Unknown]
  - Miosis [Unknown]
  - Road traffic accident [Unknown]
  - Dysarthria [Unknown]
  - Impaired driving ability [Unknown]
